FAERS Safety Report 17072829 (Version 1)
Quarter: 2019Q4

REPORT INFORMATION
  Report Type: Spontaneous
  Country: DE (occurrence: DE)
  Receive Date: 20191125
  Receipt Date: 20191125
  Transmission Date: 20200122
  Serious: Yes (Hospitalization)
  Sender: FDA-Public Use
  Company Number: DE-MYLANLABS-2019M1113175

PATIENT
  Age: 58 Year
  Sex: Female
  Weight: 110 kg

DRUGS (7)
  1. IMRALDI [Suspect]
     Active Substance: ADALIMUMAB
     Indication: PRODUCT USED FOR UNKNOWN INDICATION
     Dosage: 40 MILLIGRAM, Q2W
     Route: 065
  2. HYDROCORTISONE. [Suspect]
     Active Substance: HYDROCORTISONE
     Indication: HYPOTHALAMO-PITUITARY DISORDER
     Dosage: 20 MILLIGRAM, QD
     Route: 065
  3. BUDENOFALK [Concomitant]
     Active Substance: BUDESONIDE
     Indication: CROHN^S DISEASE
     Dosage: 9 MILLIGRAM, QD
     Route: 065
     Dates: start: 2017, end: 201905
  4. IMRALDI [Suspect]
     Active Substance: ADALIMUMAB
     Dosage: 40 MILLIGRAM
     Route: 065
     Dates: start: 20190319
  5. DEKRISTOL [Concomitant]
     Active Substance: CHOLECALCIFEROL
     Indication: VITAMIN D DEFICIENCY
     Dosage: 2000 INTERNATIONAL UNIT, QW
     Route: 065
  6. IMRALDI [Suspect]
     Active Substance: ADALIMUMAB
     Dosage: 160 MILLIGRAM
     Route: 065
     Dates: start: 20190219
  7. IMRALDI [Suspect]
     Active Substance: ADALIMUMAB
     Dosage: 80 MILLIGRAM
     Route: 065
     Dates: start: 20190305

REACTIONS (3)
  - Visceral oedema [Unknown]
  - Adrenocortical insufficiency acute [Unknown]
  - General physical health deterioration [Unknown]

NARRATIVE: CASE EVENT DATE: 20190612
